FAERS Safety Report 4675731-9 (Version None)
Quarter: 2005Q2

REPORT INFORMATION
  Report Type: 
  Country: None (occurrence: None)
  Receive Date: 20050527
  Receipt Date: 20050303
  Transmission Date: 20051028
  Serious: Yes (Other)
  Sender: FDA-Public Use
  Company Number: US-BRISTOL-MYERS SQUIBB COMPANY-12884698

PATIENT
  Age: 60 Year
  Sex: Male
  Weight: 92 kg

DRUGS (9)
  1. ERBITUX [Suspect]
     Indication: COLORECTAL CANCER METASTATIC
     Dosage: START DATE DEC 2004, WEEKLY TREATMENTS.
  2. AVASTIN [Concomitant]
     Dosage: START DATE DEC 2004
  3. CARBOPLATIN [Concomitant]
     Dosage: GIVEN THE FIRST 14 DAYS OF A 28 DAY CYCLE
  4. FUDR [Concomitant]
     Dosage: GIVEN ON THE FIRST 14 DAYS OF A 28 DAY CYCLE
  5. TIAZAC [Concomitant]
  6. LANOXIN [Concomitant]
     Dosage: TAKEN AT BEDTIME
  7. NEXIUM [Concomitant]
  8. UROXATRAL [Concomitant]
     Dosage: TAKEN AT BEDTIME
  9. DIAZEPAM [Concomitant]

REACTIONS (1)
  - ABDOMINAL PAIN [None]
